FAERS Safety Report 5507707-3 (Version None)
Quarter: 2007Q4

REPORT INFORMATION
  Report Type: 
  Country: None (occurrence: None)
  Receive Date: 20071106
  Receipt Date: 20071102
  Transmission Date: 20080405
  Serious: Yes (Hospitalization)
  Sender: FDA-Public Use
  Company Number: B0493994A

PATIENT
  Age: 72 Year
  Sex: Male

DRUGS (6)
  1. CLAMOXYL [Suspect]
     Dosage: 12G PER DAY
     Route: 048
     Dates: start: 20070821, end: 20070830
  2. AMOXICILLIN [Suspect]
     Dosage: 3G FOUR TIMES PER DAY
     Route: 048
     Dates: start: 20070830, end: 20070903
  3. CLAMOXYL IV [Concomitant]
     Route: 042
     Dates: start: 20070807, end: 20070820
  4. CRESTOR [Concomitant]
  5. HYDROCHLOROTHIAZIDE + OLMESARTAN MEDOXOMIL [Concomitant]
  6. GENTAMICIN [Concomitant]
     Route: 042
     Dates: start: 20070807, end: 20070820

REACTIONS (3)
  - PRURITUS [None]
  - RASH [None]
  - URTICARIA [None]
